FAERS Safety Report 12289899 (Version 1)
Quarter: 2016Q2

REPORT INFORMATION
  Report Type: Spontaneous
  Country: US (occurrence: None)
  Receive Date: 20160420
  Receipt Date: 20160420
  Transmission Date: 20160815
  Serious: Yes (Life-Threatening, Hospitalization)
  Sender: FDA-Public Use
  Company Number: None

PATIENT
  Age: 43 Year
  Sex: Male
  Weight: 113.4 kg

DRUGS (1)
  1. PRIVIGEN [Suspect]
     Active Substance: HUMAN IMMUNOGLOBULIN G
     Indication: TRANSPLANT REJECTION
     Route: 041
     Dates: start: 20160317, end: 20160318

REACTIONS (4)
  - Pulmonary alveolar haemorrhage [None]
  - Haemoptysis [None]
  - Respiratory distress [None]
  - Blood sodium decreased [None]

NARRATIVE: CASE EVENT DATE: 20160320
